FAERS Safety Report 4749068-3 (Version None)
Quarter: 2005Q3

REPORT INFORMATION
  Report Type: 
  Country: None (occurrence: None)
  Receive Date: 20050817
  Receipt Date: 20050810
  Transmission Date: 20060218
  Serious: Yes (Death)
  Sender: FDA-Public Use
  Company Number: B0390328A

PATIENT
  Age: 64 Year
  Sex: Female

DRUGS (8)
  1. MYLERAN [Suspect]
     Indication: MANTLE CELL LYMPHOMA
     Dosage: 1 MG/KG/FOUR TIMES PER DAY/ORAL
     Route: 048
  2. ALKERAN [Suspect]
     Indication: MANTLE CELL LYMPHOMA
     Dosage: 140 MG/M2,INTRAVENOUS
     Route: 042
  3. CLONAZEPAM [Concomitant]
  4. CO-TRIMOXAZOLE [Concomitant]
  5. RITUXIMAB [Concomitant]
  6. FLUCONAZOLE [Concomitant]
  7. ANTIBIOTICS [Concomitant]
  8. CORTICOSTEROID [Concomitant]

REACTIONS (4)
  - ACUTE RESPIRATORY DISTRESS SYNDROME [None]
  - PNEUMONITIS [None]
  - PULMONARY TOXICITY [None]
  - RESPIRATORY FAILURE [None]
